FAERS Safety Report 13858867 (Version 1)
Quarter: 2017Q3

REPORT INFORMATION
  Report Type: Spontaneous
  Country: IT (occurrence: IT)
  Receive Date: 20170811
  Receipt Date: 20170811
  Transmission Date: 20171127
  Serious: Yes (Other)
  Sender: FDA-Public Use
  Company Number: IT-SHIRE-IT201717664

PATIENT

DRUGS (1)
  1. FOSRENOL [Suspect]
     Active Substance: LANTHANUM CARBONATE
     Indication: END STAGE RENAL DISEASE
     Dosage: 1 G, 2X/DAY:BID FOR 6 MONTHS
     Route: 065

REACTIONS (1)
  - Gastritis [Unknown]
